FAERS Safety Report 11975296 (Version 1)
Quarter: 2016Q1

REPORT INFORMATION
  Report Type: Spontaneous
  Country: US (occurrence: US)
  Receive Date: 20160128
  Receipt Date: 20160128
  Transmission Date: 20160526
  Serious: Yes (Hospitalization)
  Sender: FDA-Public Use
  Company Number: US-DSJP-DSU-2015-133631

PATIENT

DRUGS (1)
  1. BENICAR [Suspect]
     Active Substance: OLMESARTAN MEDOXOMIL
     Indication: HYPERTENSION
     Dosage: 2.5 MG, QD
     Dates: start: 200910, end: 201406

REACTIONS (10)
  - Gastrooesophageal reflux disease [Unknown]
  - Gallbladder disorder [Unknown]
  - Acute kidney injury [Not Recovered/Not Resolved]
  - Biliary dyskinesia [Unknown]
  - Pancreatitis [Unknown]
  - Cholecystitis [Unknown]
  - Drug administration error [Unknown]
  - Malabsorption [Unknown]
  - Hepatic steatosis [Unknown]
  - Renal cyst [Unknown]

NARRATIVE: CASE EVENT DATE: 200910
